FAERS Safety Report 9355832 (Version 1)
Quarter: 2013Q2

REPORT INFORMATION
  Report Type: Spontaneous
  Country: BR (occurrence: BR)
  Receive Date: 20130619
  Receipt Date: 20130619
  Transmission Date: 20140414
  Serious: Yes (Other)
  Sender: FDA-Public Use
  Company Number: BR-ASTRAZENECA-2013SE42389

PATIENT
  Age: 30 Year
  Sex: Female
  Weight: 39 kg

DRUGS (4)
  1. ESOMEPRAZOLE MEDLEY [Suspect]
     Indication: GASTRITIS
     Dosage: 20 MG BID, GENERIC
     Route: 048
     Dates: start: 20130605
  2. BENZETACIL [Suspect]
     Indication: OROPHARYNGEAL PAIN
     Dosage: ONCE/SINGLE ADMINISTRATION
     Route: 030
     Dates: start: 20130609, end: 20130609
  3. LORATADINE (SYRUP) [Concomitant]
     Indication: COUGH
     Dosage: TWO TIMES A DAY
     Dates: start: 20130602, end: 20130606
  4. PYLORIPAC [Concomitant]
     Indication: HELICOBACTER INFECTION

REACTIONS (6)
  - Oropharyngeal pain [Not Recovered/Not Resolved]
  - Weight decreased [Not Recovered/Not Resolved]
  - Dysphagia [Unknown]
  - Abdominal pain upper [Not Recovered/Not Resolved]
  - Gastrointestinal pain [Not Recovered/Not Resolved]
  - Headache [Unknown]
